FAERS Safety Report 7998763-1 (Version None)
Quarter: 2011Q4

REPORT INFORMATION
  Report Type: 
  Country: None (occurrence: None)
  Receive Date: 20111221
  Receipt Date: 20111206
  Transmission Date: 20120403
  Serious: Yes (Other)
  Sender: FDA-Public Use
  Company Number: US-WATSON-2011-21152

PATIENT
  Sex: Male

DRUGS (2)
  1. PROPOXYPHENE HCL AND ACETAMINOPHEN [Suspect]
     Indication: PAIN MANAGEMENT
     Dosage: UNK
     Route: 048
  2. DARVOCET [Suspect]
     Indication: PAIN MANAGEMENT
     Dosage: UNK
     Route: 065

REACTIONS (10)
  - DIZZINESS [None]
  - BRADYCARDIA [None]
  - DECREASED APPETITE [None]
  - URINE COLOUR ABNORMAL [None]
  - DRY MOUTH [None]
  - SOMNOLENCE [None]
  - CHEST PAIN [None]
  - DYSPNOEA [None]
  - HYPOPNOEA [None]
  - ERECTILE DYSFUNCTION [None]
